FAERS Safety Report 12130818 (Version 2)
Quarter: 2018Q2

REPORT INFORMATION
  Report Type: Spontaneous
  Country: US (occurrence: US)
  Receive Date: 20160301
  Receipt Date: 20180607
  Transmission Date: 20180711
  Serious: No
  Sender: FDA-Public Use
  Company Number: US-JNJFOC-20160207978

PATIENT
  Age: 86 Year
  Sex: Female
  Weight: 77.11 kg

DRUGS (6)
  1. CALCITRIOL. [Concomitant]
     Active Substance: CALCITRIOL
     Indication: BONE DISORDER
     Dosage: INTERVAL: 10 YEARS
     Route: 065
  2. IMODIUM MULTI-SYMPTOM RELIEF [Suspect]
     Active Substance: DIMETHICONE\LOPERAMIDE HYDROCHLORIDE
     Indication: FLATULENCE
     Route: 048
     Dates: start: 20160205
  3. IMODIUM MULTI-SYMPTOM RELIEF [Suspect]
     Active Substance: DIMETHICONE\LOPERAMIDE HYDROCHLORIDE
     Indication: DIARRHOEA
     Route: 048
     Dates: start: 20160205
  4. QUINAPRIL. [Concomitant]
     Active Substance: QUINAPRIL
     Indication: HYPERTENSION
     Dosage: 2 PILLS 2/12.5 DAYS FROM 10 YEARS
     Route: 065
  5. OMEGA-3 FATTY ACIDS [Concomitant]
     Active Substance: OMEGA-3 FATTY ACIDS
     Indication: NUTRITIONAL SUPPLEMENTATION
     Dosage: INTERVAL: 10 YEARS
     Route: 065
  6. VITAMIN D3 [Concomitant]
     Active Substance: CHOLECALCIFEROL
     Indication: NUTRITIONAL SUPPLEMENTATION
     Dosage: INTERVAL: 10 YEARS
     Route: 065

REACTIONS (5)
  - Abdominal tenderness [Recovering/Resolving]
  - Off label use [Unknown]
  - Dyspepsia [Recovering/Resolving]
  - Product use in unapproved indication [Unknown]
  - Incorrect dose administered [Unknown]

NARRATIVE: CASE EVENT DATE: 20160206
